FAERS Safety Report 14264223 (Version 1)
Quarter: 2017Q4

REPORT INFORMATION
  Report Type: Spontaneous
  Country: US (occurrence: US)
  Receive Date: 20171208
  Receipt Date: 20171208
  Transmission Date: 20180321
  Serious: Yes (Other)
  Sender: FDA-Public Use
  Company Number: US-PFIZER INC-2017514439

PATIENT
  Age: 72 Year
  Sex: Male

DRUGS (11)
  1. ELIQUIS [Suspect]
     Active Substance: APIXABAN
     Indication: CEREBROVASCULAR ACCIDENT PROPHYLAXIS
     Dosage: 5 MG/KG, 2X/DAY
     Route: 048
  2. CYANOCOBALAMIN. [Concomitant]
     Active Substance: CYANOCOBALAMIN
     Dosage: 1000 ?G, Q4WK
     Route: 030
  3. NASACORT AQ [Concomitant]
     Active Substance: TRIAMCINOLONE ACETONIDE
     Dosage: 2 DF, QD 55 MCG
     Route: 045
  4. LOVENOX [Concomitant]
     Active Substance: ENOXAPARIN SODIUM
     Dosage: 80 MG/0.8 ML INJECTION
     Route: 058
  5. ATROVENT [Concomitant]
     Active Substance: IPRATROPIUM BROMIDE
     Dosage: 2 DF, TID 0.06%
     Route: 045
  6. ZANTAC [Concomitant]
     Active Substance: RANITIDINE HYDROCHLORIDE
     Dosage: 1 DF, BID, PRN 75MG TABLET
     Route: 048
  7. REVATIO [Suspect]
     Active Substance: SILDENAFIL CITRATE
     Indication: PULMONARY HYPERTENSION
     Dosage: 20 MG, TID
     Route: 048
  8. VALIUM [Concomitant]
     Active Substance: DIAZEPAM
     Dosage: 1 TAB, Q6H PRN 5 MG TABLET (1 TABLET BY MOUTH EVERY 6 HOURS IF NEEDED)
     Route: 048
  9. DRISDOL [Concomitant]
     Active Substance: ERGOCALCIFEROL
     Dosage: 1 DF, Q2WK  50000 UNIT
     Route: 048
  10. FOSAMAX [Concomitant]
     Active Substance: ALENDRONATE SODIUM
     Dosage: 1 TAB, QWK
     Route: 048
  11. NORCO [Concomitant]
     Active Substance: ACETAMINOPHEN\HYDROCODONE BITARTRATE
     Dosage: 1 DF, Q6H PRN
     Route: 048

REACTIONS (10)
  - Transient ischaemic attack [Unknown]
  - Injury [Unknown]
  - Sleep apnoea syndrome [Unknown]
  - Chest injury [Unknown]
  - Pain [Recovering/Resolving]
  - Dysarthria [Unknown]
  - Intestinal obstruction [Unknown]
  - Gait disturbance [Unknown]
  - Atrial fibrillation [Unknown]
  - Fall [Unknown]
